FAERS Safety Report 7759391-6 (Version None)
Quarter: 2011Q3

REPORT INFORMATION
  Report Type: 
  Country: None (occurrence: None)
  Receive Date: 20110919
  Receipt Date: 20110909
  Transmission Date: 20111222
  Serious: Yes (Other)
  Sender: FDA-Public Use
  Company Number: CN-ROCHE-729586

PATIENT
  Sex: Male
  Weight: 50.5 kg

DRUGS (1)
  1. TOCILIZUMAB [Suspect]
     Dosage: FREQUENCY: ONCE
     Route: 042
     Dates: start: 20100722, end: 20100722

REACTIONS (1)
  - ABORTION SPONTANEOUS [None]
